FAERS Safety Report 10062460 (Version 1)
Quarter: 2014Q1

REPORT INFORMATION
  Report Type: Spontaneous
  Country: US (occurrence: None)
  Receive Date: 20140313
  Receipt Date: 20140313
  Transmission Date: 20141002
  Serious: Yes (Other)
  Sender: FDA-Public Use
  Company Number: 1000052376

PATIENT
  Age: 72 Year
  Sex: Male
  Weight: 131.5 kg

DRUGS (1)
  1. DALIRESP (ROFLUMILAST) [Suspect]
     Dates: start: 2013

REACTIONS (1)
  - Weight decreased [None]
